FAERS Safety Report 8304233-3 (Version None)
Quarter: 2012Q2

REPORT INFORMATION
  Report Type: 
  Country: None (occurrence: None)
  Receive Date: 20120423
  Receipt Date: 20120418
  Transmission Date: 20120825
  Serious: No
  Sender: FDA-Public Use
  Company Number: US-B.I. PHARMACEUTICALS,INC./RIDGEFIELD-2012-BP-07384BP

PATIENT
  Sex: Female

DRUGS (6)
  1. PREDNISONE TAB [Concomitant]
     Indication: CHRONIC OBSTRUCTIVE PULMONARY DISEASE
     Route: 048
  2. LEVOTHYROXINE SODIUM [Concomitant]
     Indication: THYROID DISORDER
  3. RANITIDINE [Concomitant]
     Indication: GASTRIC DISORDER
     Dosage: 300 MG
     Route: 048
  4. SPIRIVA [Suspect]
     Indication: CHRONIC OBSTRUCTIVE PULMONARY DISEASE
     Dosage: 18 MCG
     Route: 055
     Dates: start: 20070101
  5. LOSARTAN [Concomitant]
     Indication: HYPERTENSION
     Dosage: 25 MG
     Route: 048
  6. ALBUTEROL [Concomitant]
     Indication: CHRONIC OBSTRUCTIVE PULMONARY DISEASE
     Route: 055

REACTIONS (4)
  - SINUSITIS [None]
  - FOREIGN BODY SENSATION IN EYES [None]
  - VISUAL IMPAIRMENT [None]
  - UPPER RESPIRATORY TRACT INFECTION [None]
